FAERS Safety Report 4370766-8 (Version None)
Quarter: 2004Q2

REPORT INFORMATION
  Report Type: 
  Country: None (occurrence: None)
  Receive Date: 20040601
  Receipt Date: 20040511
  Transmission Date: 20050107
  Serious: Yes (Hospitalization)
  Sender: FDA-Public Use
  Company Number: FR_040504093

PATIENT
  Age: 79 Year
  Sex: Male

DRUGS (6)
  1. HUMALOG [Suspect]
     Dates: end: 20040312
  2. HUMULINE-HUMAN REGULAR INSULIN (RDNA) (HUMAN INSULI [Suspect]
     Dates: end: 20040312
  3. AUGMENTIN [Concomitant]
  4. ASPIRIN [Concomitant]
  5. ZOCOR [Concomitant]
  6. ATACAND [Concomitant]

REACTIONS (3)
  - HAEMATOMA [None]
  - ORAL MUCOSAL PETECHIAE [None]
  - THROMBOCYTOPENIC PURPURA [None]
